FAERS Safety Report 14624219 (Version 3)
Quarter: 2021Q2

REPORT INFORMATION
  Report Type: Spontaneous
  Country: US (occurrence: US)
  Receive Date: 20180312
  Receipt Date: 20210623
  Transmission Date: 20210716
  Serious: Yes (Hospitalization, Other)
  Sender: FDA-Public Use
  Company Number: US-ASTRAZENECA-2018SE29329

PATIENT
  Age: 21053 Day
  Sex: Female
  Weight: 135.6 kg

DRUGS (43)
  1. NEXIUM [Suspect]
     Active Substance: ESOMEPRAZOLE MAGNESIUM
     Indication: GASTROOESOPHAGEAL REFLUX DISEASE
     Route: 048
     Dates: start: 20150420, end: 20160620
  2. GABAPENTIN. [Concomitant]
     Active Substance: GABAPENTIN
     Dates: start: 20101006, end: 20160630
  3. LEVETIRACETAM. [Concomitant]
     Active Substance: LEVETIRACETAM
  4. HYDROCODONE [Concomitant]
     Active Substance: HYDROCODONE
  5. ALBUTEROL. [Concomitant]
     Active Substance: ALBUTEROL
  6. ROPINIROLE. [Concomitant]
     Active Substance: ROPINIROLE
  7. PANTOPRAZOLE [Suspect]
     Active Substance: PANTOPRAZOLE
     Indication: GASTROOESOPHAGEAL REFLUX DISEASE
     Route: 065
     Dates: start: 20150606, end: 20150816
  8. LISINOPRIL. [Concomitant]
     Active Substance: LISINOPRIL
  9. NITROGLYCERIN. [Concomitant]
     Active Substance: NITROGLYCERIN
  10. COLACE [Concomitant]
     Active Substance: DOCUSATE SODIUM
  11. LIPITOR [Concomitant]
     Active Substance: ATORVASTATIN CALCIUM
  12. PLAVIX [Concomitant]
     Active Substance: CLOPIDOGREL BISULFATE
  13. LEVEMIR [Concomitant]
     Active Substance: INSULIN DETEMIR
     Dates: start: 20100705, end: 20160630
  14. CARTIA [Concomitant]
     Dates: start: 20150708, end: 20160730
  15. CYMBALTA [Concomitant]
     Active Substance: DULOXETINE HYDROCHLORIDE
  16. VASCEPA [Concomitant]
     Active Substance: ICOSAPENT ETHYL
  17. MECLIZINE [Concomitant]
     Active Substance: MECLIZINE HYDROCHLORIDE
  18. ATORVASTATIN [Concomitant]
     Active Substance: ATORVASTATIN
  19. PREDNISONE. [Concomitant]
     Active Substance: PREDNISONE
  20. MYLANTA [Concomitant]
     Active Substance: ALUMINUM HYDROXIDE\DIMETHICONE\MAGNESIUM HYDROXIDE
  21. ALPRAZOLAM. [Concomitant]
     Active Substance: ALPRAZOLAM
  22. LORATADINE. [Concomitant]
     Active Substance: LORATADINE
  23. TRAMADOL. [Concomitant]
     Active Substance: TRAMADOL
  24. BUMETANIDE. [Concomitant]
     Active Substance: BUMETANIDE
  25. BROVANA [Concomitant]
     Active Substance: ARFORMOTEROL TARTRATE
  26. FLUTICASONE. [Concomitant]
     Active Substance: FLUTICASONE
  27. NEXIUM [Suspect]
     Active Substance: ESOMEPRAZOLE MAGNESIUM
     Indication: GASTROOESOPHAGEAL REFLUX DISEASE
     Route: 048
     Dates: start: 20151205
  28. NEXIUM [Suspect]
     Active Substance: ESOMEPRAZOLE MAGNESIUM
     Indication: GASTROOESOPHAGEAL REFLUX DISEASE
     Route: 048
     Dates: start: 20160307
  29. CITALOPRAM [Concomitant]
     Active Substance: CITALOPRAM HYDROBROMIDE
  30. MIDODRINE HYDROCHLORIDE. [Concomitant]
     Active Substance: MIDODRINE HYDROCHLORIDE
  31. ROPINIROLE. [Concomitant]
     Active Substance: ROPINIROLE
  32. SOTALOL. [Concomitant]
     Active Substance: SOTALOL
  33. VERAPAMIL [Concomitant]
     Active Substance: VERAPAMIL HYDROCHLORIDE
  34. SOTALOL. [Concomitant]
     Active Substance: SOTALOL
  35. PULMICORT TURBUHALER [Concomitant]
     Active Substance: BUDESONIDE
  36. NEXIUM [Suspect]
     Active Substance: ESOMEPRAZOLE MAGNESIUM
     Indication: GASTROOESOPHAGEAL REFLUX DISEASE
     Route: 048
     Dates: start: 201310, end: 201606
  37. MORPHINE [Concomitant]
     Active Substance: MORPHINE
  38. NADOLOL. [Concomitant]
     Active Substance: NADOLOL
  39. HYDROCODONE [Concomitant]
     Active Substance: HYDROCODONE
  40. DIGOX [Concomitant]
     Active Substance: DIGOXIN
  41. OMEPRAZOLE. [Suspect]
     Active Substance: OMEPRAZOLE
     Indication: GASTROOESOPHAGEAL REFLUX DISEASE
     Route: 065
     Dates: start: 20131019, end: 20150512
  42. LEVOTHYROXINE. [Concomitant]
     Active Substance: LEVOTHYROXINE
  43. MAALOX ANTACID [Concomitant]
     Active Substance: ALUMINUM HYDROXIDE\DIMETHICONE\MAGNESIUM HYDROXIDE

REACTIONS (5)
  - Acute kidney injury [Recovered/Resolved]
  - Chronic kidney disease [Recovered/Resolved]
  - Hyperkalaemia [Unknown]
  - Metabolic acidosis [Unknown]
  - Renal failure [Unknown]

NARRATIVE: CASE EVENT DATE: 20160213
